FAERS Safety Report 25780453 (Version 2)
Quarter: 2025Q4

REPORT INFORMATION
  Report Type: Spontaneous
  Country: US (occurrence: US)
  Receive Date: 20250909
  Receipt Date: 20251114
  Transmission Date: 20260117
  Serious: No
  Sender: SANOFI AVENTIS
  Company Number: US-SA-2025SA267705

PATIENT
  Sex: Female
  Weight: 60.45 kg

DRUGS (5)
  1. DUPIXENT [Suspect]
     Active Substance: DUPILUMAB
     Indication: Dermatitis atopic
     Dosage: 300 MG, QOW
     Route: 058
  2. MAGNESIUM [Concomitant]
     Active Substance: MAGNESIUM
  3. ZEPBOUND [Concomitant]
     Active Substance: TIRZEPATIDE
  4. LEVOTHYROXINE SODIUM [Concomitant]
     Active Substance: LEVOTHYROXINE SODIUM
     Dosage: UNK
  5. IVERMECTIN [Concomitant]
     Active Substance: IVERMECTIN
     Dosage: UNK

REACTIONS (3)
  - Perioral dermatitis [Unknown]
  - Dermatitis atopic [Unknown]
  - Product dose omission issue [Unknown]
